FAERS Safety Report 5616098-9 (Version None)
Quarter: 2008Q1

REPORT INFORMATION
  Report Type: 
  Country: None (occurrence: None)
  Receive Date: 20080206
  Receipt Date: 20080125
  Transmission Date: 20080703
  Serious: Yes (Other)
  Sender: FDA-Public Use
  Company Number: US-PFIZER INC-2008007899

PATIENT
  Sex: Female
  Weight: 115 kg

DRUGS (4)
  1. LYRICA [Suspect]
     Indication: BONE PAIN
     Dates: start: 20050101, end: 20050101
  2. INSULIN [Concomitant]
     Indication: TYPE 2 DIABETES MELLITUS
  3. BENICAR [Concomitant]
     Indication: HYPERTENSION
  4. CYMBALTA [Concomitant]
     Indication: DEPRESSION

REACTIONS (2)
  - DRUG INEFFECTIVE [None]
  - FIBROMYALGIA [None]
